FAERS Safety Report 5125908-3 (Version None)
Quarter: 2006Q4

REPORT INFORMATION
  Report Type: 
  Country: None (occurrence: None)
  Receive Date: 20061012
  Receipt Date: 20061009
  Transmission Date: 20070319
  Serious: Yes (Hospitalization)
  Sender: FDA-Public Use
  Company Number: AU-GLAXOSMITHKLINE-B0441683A

PATIENT
  Age: 40 Year
  Sex: Male

DRUGS (2)
  1. LAMICTAL [Suspect]
     Indication: EPILEPSY
     Dosage: 50MG TWICE PER DAY
     Route: 065
  2. EPILIM [Concomitant]
     Dosage: 2.5G PER DAY
     Route: 065

REACTIONS (9)
  - COORDINATION ABNORMAL [None]
  - HEPATIC FAILURE [None]
  - HYPERSENSITIVITY [None]
  - HYPOCHLORAEMIA [None]
  - HYPONATRAEMIA [None]
  - INFECTION [None]
  - PYREXIA [None]
  - RASH [None]
  - THROMBOCYTOPENIA [None]
